FAERS Safety Report 5069298-3 (Version None)
Quarter: 2006Q3

REPORT INFORMATION
  Report Type: 
  Country: None (occurrence: None)
  Receive Date: 20060731
  Receipt Date: 20060720
  Transmission Date: 20061208
  Serious: Yes (Other)
  Sender: FDA-Public Use
  Company Number: 2006090302

PATIENT
  Age: 23 Year
  Sex: Female

DRUGS (6)
  1. GEODON [Suspect]
     Indication: MENTAL DISORDER
     Dosage: 120 MG (60 MG, 2 IN 1 D)
     Dates: start: 20060101
  2. COGENTIN [Concomitant]
  3. DEPAKOTE [Concomitant]
  4. TRAZODONE HCL [Concomitant]
  5. SEROQUEL [Concomitant]
  6. LEVOTHYROXINE SODIUM [Concomitant]

REACTIONS (1)
  - THYROID DISORDER [None]
